FAERS Safety Report 13465182 (Version 8)
Quarter: 2017Q4

REPORT INFORMATION
  Report Type: Report from Study
  Country: CA (occurrence: CA)
  Receive Date: 20170421
  Receipt Date: 20171128
  Transmission Date: 20180320
  Serious: Yes (Other)
  Sender: FDA-Public Use
  Company Number: CA-TAKEDA-2017TUS003669

PATIENT
  Age: 60 Year
  Sex: Female

DRUGS (2)
  1. BUDESONIDE. [Concomitant]
     Active Substance: BUDESONIDE
     Dosage: UNK
     Dates: start: 20161206
  2. VEDOLIZUMAB [Suspect]
     Active Substance: VEDOLIZUMAB
     Indication: CROHN^S DISEASE
     Dosage: 300 MG, UNK
     Route: 042
     Dates: start: 20170106, end: 20170919

REACTIONS (24)
  - Wheezing [Unknown]
  - Arthritis [Unknown]
  - Herpes zoster [Unknown]
  - Arthralgia [Unknown]
  - Intestinal obstruction [Unknown]
  - Rash [Unknown]
  - Swollen tongue [Unknown]
  - Tracheal pain [Unknown]
  - Sinus pain [Unknown]
  - Back pain [Unknown]
  - Therapeutic response unexpected [Unknown]
  - Peripheral swelling [Unknown]
  - Oropharyngeal pain [Unknown]
  - Sinus disorder [Unknown]
  - Musculoskeletal discomfort [Unknown]
  - External ear pain [Unknown]
  - Laryngitis [Not Recovered/Not Resolved]
  - Cough [Unknown]
  - Diverticulitis [Unknown]
  - Intestinal stenosis [Unknown]
  - Lymph node pain [Unknown]
  - Abdominal pain [Not Recovered/Not Resolved]
  - Atypical pneumonia [Unknown]
  - Pruritus [Unknown]

NARRATIVE: CASE EVENT DATE: 2017
